FAERS Safety Report 25151883 (Version 1)
Quarter: 2025Q2

REPORT INFORMATION
  Report Type: Spontaneous
  Country: TR (occurrence: TR)
  Receive Date: 20250402
  Receipt Date: 20250402
  Transmission Date: 20250717
  Serious: Yes (Death, Other)
  Sender: AMGEN
  Company Number: TR-AMGEN-TURSP2025059615

PATIENT

DRUGS (1)
  1. ADALIMUMAB [Suspect]
     Active Substance: ADALIMUMAB
     Indication: Immunosuppression
     Route: 065

REACTIONS (9)
  - Death [Fatal]
  - Rheumatic disorder [Unknown]
  - Vasculitis [Unknown]
  - Systemic lupus erythematosus [Unknown]
  - Rheumatoid arthritis [Unknown]
  - Blood pressure increased [Unknown]
  - Glucose tolerance impaired [Unknown]
  - Connective tissue disorder [Unknown]
  - Off label use [Unknown]
